FAERS Safety Report 12398209 (Version 1)
Quarter: 2016Q2

REPORT INFORMATION
  Report Type: Spontaneous
  Country: US (occurrence: None)
  Receive Date: 20160523
  Receipt Date: 20160523
  Transmission Date: 20160815
  Serious: Yes (Hospitalization)
  Sender: FDA-Public Use
  Company Number: None

PATIENT
  Age: 54 Year
  Sex: Male
  Weight: 82.7 kg

DRUGS (2)
  1. ERBITUX [Suspect]
     Active Substance: CETUXIMAB
     Dates: end: 20141001
  2. TAXOTERE [Suspect]
     Active Substance: DOCETAXEL
     Dates: end: 20141001

REACTIONS (4)
  - Pyrexia [None]
  - Radiation skin injury [None]
  - Device related infection [None]
  - Weight decreased [None]

NARRATIVE: CASE EVENT DATE: 20141007
